FAERS Safety Report 7050940-2 (Version None)
Quarter: 2010Q4

REPORT INFORMATION
  Report Type: 
  Country: None (occurrence: None)
  Receive Date: 20101019
  Receipt Date: 20101005
  Transmission Date: 20110411
  Serious: Yes (Other)
  Sender: FDA-Public Use
  Company Number: US-BAYER-201036599NA

PATIENT
  Sex: Female

DRUGS (1)
  1. MIRENA [Suspect]
     Indication: PRODUCT USED FOR UNKNOWN INDICATION
     Route: 015
     Dates: end: 20100915

REACTIONS (7)
  - ASTHENIA [None]
  - CYST [None]
  - DIZZINESS [None]
  - NAUSEA [None]
  - NEPHROLITHIASIS [None]
  - POST PROCEDURAL HAEMORRHAGE [None]
  - WEIGHT INCREASED [None]
